FAERS Safety Report 14537037 (Version 1)
Quarter: 2018Q1

REPORT INFORMATION
  Report Type: Spontaneous
  Country: JP (occurrence: JP)
  Receive Date: 20180215
  Receipt Date: 20180215
  Transmission Date: 20180509
  Serious: Yes (Hospitalization)
  Sender: FDA-Public Use
  Company Number: JP-JNJFOC-20180220425

PATIENT
  Age: 71 Year
  Sex: Male

DRUGS (2)
  1. BEPRICOR [Suspect]
     Active Substance: BEPRIDIL
     Indication: PRODUCT USED FOR UNKNOWN INDICATION
     Route: 065
  2. XARELTO [Suspect]
     Active Substance: RIVAROXABAN
     Indication: ATRIAL FIBRILLATION
     Route: 048
     Dates: start: 20170406

REACTIONS (3)
  - Interstitial lung disease [Not Recovered/Not Resolved]
  - Interstitial lung disease [Recovered/Resolved with Sequelae]
  - Retroperitoneal haemorrhage [Recovered/Resolved]

NARRATIVE: CASE EVENT DATE: 20170413
